FAERS Safety Report 16914594 (Version 2)
Quarter: 2020Q1

REPORT INFORMATION
  Report Type: Spontaneous
  Country: GB (occurrence: GB)
  Receive Date: 20191014
  Receipt Date: 20200302
  Transmission Date: 20200409
  Serious: Yes (Other)
  Sender: FDA-Public Use
  Company Number: GB-MYLANLABS-2019M1095187

PATIENT
  Age: 77 Year
  Sex: Male
  Weight: 71.66 kg

DRUGS (12)
  1. LEVOTHYROXINE. [Concomitant]
     Active Substance: LEVOTHYROXINE
     Indication: HYPOTHYROIDISM
     Dosage: 75 MICROGRAM, QD, (25 MCG AND 50 MCG DAILY)
     Route: 048
     Dates: start: 2009
  2. ATIMOS [Concomitant]
     Active Substance: FORMOTEROL
     Indication: CHRONIC OBSTRUCTIVE PULMONARY DISEASE
     Dosage: 12 MICROGRAM
     Route: 055
     Dates: start: 201809
  3. VENTOLIN [Concomitant]
     Active Substance: ALBUTEROL SULFATE
     Indication: CHRONIC OBSTRUCTIVE PULMONARY DISEASE
     Dosage: 100 MICROGRAM, PRN, AS NECESSARY
     Route: 051
     Dates: start: 2003
  4. IBANDRONATE [Suspect]
     Active Substance: IBANDRONATE SODIUM
     Indication: HIP FRACTURE
     Dosage: 150 MILLIGRAM, MONTHLY
     Route: 048
     Dates: start: 20170107, end: 20190605
  5. ADCAL D3 [Suspect]
     Active Substance: CALCIUM CARBONATE\CHOLECALCIFEROL
     Indication: HIP FRACTURE
     Dosage: 2 DOSAGE FORM, QD
     Route: 048
     Dates: start: 20170107, end: 20190605
  6. BETAHISTINE [Concomitant]
     Active Substance: BETAHISTINE
     Indication: EAR DISORDER
     Dosage: 16 MILLIGRAM
     Route: 048
     Dates: start: 2006
  7. CANDESARTAN. [Concomitant]
     Active Substance: CANDESARTAN
     Indication: HYPERTENSION
     Dosage: 8 MILLIGRAM, QD
     Route: 048
     Dates: start: 2005
  8. SPIRIVA [Concomitant]
     Active Substance: TIOTROPIUM BROMIDE MONOHYDRATE
     Indication: CHRONIC OBSTRUCTIVE PULMONARY DISEASE
     Dosage: 18 MICROGRAM, QD
     Route: 055
     Dates: start: 2008
  9. LEVOTHYROXINE. [Concomitant]
     Active Substance: LEVOTHYROXINE
     Indication: HYPOTHYROIDISM
     Dosage: UNK
  10. WARFARIN [Concomitant]
     Active Substance: WARFARIN
     Indication: ATRIAL FIBRILLATION
     Dosage: UNK, 3 MG OR 4 MG DAILY
     Route: 048
     Dates: start: 2010
  11. OMEPRAZOLE. [Concomitant]
     Active Substance: OMEPRAZOLE
     Indication: GASTRIC ULCER
     Dosage: 20 MILLIGRAM, QOD
     Route: 048
     Dates: start: 200510
  12. GLYCERYL TRINITRATE [Concomitant]
     Active Substance: NITROGLYCERIN
     Indication: ANGINA PECTORIS
     Dosage: 400 MICROGRAM
     Route: 055
     Dates: start: 201904

REACTIONS (2)
  - Haematochezia [Recovered/Resolved]
  - Frequent bowel movements [Recovered/Resolved]
